FAERS Safety Report 7319272-9 (Version None)
Quarter: 2011Q1

REPORT INFORMATION
  Report Type: 
  Country: None (occurrence: None)
  Receive Date: 20110228
  Receipt Date: 20100105
  Transmission Date: 20110831
  Serious: Yes (Other)
  Sender: FDA-Public Use
  Company Number: A0838047A

PATIENT
  Age: 43 Year
  Sex: Female
  Weight: 96.8 kg

DRUGS (2)
  1. SEROQUEL [Concomitant]
     Dates: start: 20091029
  2. LAMICTAL [Suspect]
     Dosage: 150MG PER DAY
     Route: 048
     Dates: start: 20091029, end: 20091222

REACTIONS (5)
  - SKIN WARM [None]
  - PALLOR [None]
  - SKIN EXFOLIATION [None]
  - STEVENS-JOHNSON SYNDROME [None]
  - RASH MACULAR [None]
